FAERS Safety Report 9353749 (Version 5)
Quarter: 2014Q3

REPORT INFORMATION
  Report Type: Spontaneous
  Country: CA (occurrence: None)
  Receive Date: 20130612
  Receipt Date: 20140808
  Transmission Date: 20150326
  Serious: Yes (Hospitalization, Other)
  Sender: FDA-Public Use
  Company Number: VAL_02561_2013

PATIENT
  Age: 73 Year
  Sex: Male

DRUGS (9)
  1. LOPRESSOR [Suspect]
     Active Substance: METOPROLOL TARTRATE
     Indication: ATRIAL FIBRILLATION
     Dosage: (50 MG IN MORNING, 25 MG AT NIGHT ORAL)
     Route: 048
  2. COUMADIN [Suspect]
     Active Substance: WARFARIN SODIUM
     Indication: ATRIAL FIBRILLATION
     Dosage: (DF)
  3. TASIGNA [Suspect]
     Active Substance: NILOTINIB
     Indication: CHRONIC MYELOID LEUKAEMIA
     Route: 048
     Dates: start: 20120307
  4. ASA [Concomitant]
     Active Substance: ASPIRIN
  5. CRESTOR [Concomitant]
     Active Substance: ROSUVASTATIN CALCIUM
  6. COUMADIN [Suspect]
     Active Substance: WARFARIN SODIUM
     Indication: BLOOD VISCOSITY INCREASED
     Dosage: (DF)
  7. XARELTO [Concomitant]
     Active Substance: RIVAROXABAN
  8. PROSTATE, HEART AND BLOOD PRESSURE MEDICATIONS [Concomitant]
  9. PANTOLOC [Concomitant]
     Active Substance: PANTOPRAZOLE SODIUM

REACTIONS (12)
  - Acne [None]
  - Blood pressure decreased [None]
  - Blood viscosity increased [None]
  - Coronary artery occlusion [None]
  - Heart rate increased [None]
  - Dyspepsia [None]
  - Glucose tolerance impaired [None]
  - Pruritus [None]
  - Blood disorder [None]
  - Coronary artery thrombosis [None]
  - Fatigue [None]
  - Cataract [None]

NARRATIVE: CASE EVENT DATE: 201203
